FAERS Safety Report 18457502 (Version 2)
Quarter: 2020Q4

REPORT INFORMATION
  Report Type: Spontaneous
  Country: IT (occurrence: IT)
  Receive Date: 20201103
  Receipt Date: 20201119
  Transmission Date: 20210114
  Serious: Yes (Other)
  Sender: FDA-Public Use
  Company Number: IT-AMGEN-ITASP2020176365

PATIENT
  Age: 49 Year
  Sex: Female

DRUGS (1)
  1. AMGEVITA [Suspect]
     Active Substance: ADALIMUMAB
     Indication: PSORIATIC ARTHROPATHY
     Dosage: 40 MILLIGRAM, CYCLICAL
     Route: 058
     Dates: start: 20200603, end: 20201020

REACTIONS (6)
  - Abdominal distension [Recovered/Resolved]
  - Folliculitis [Recovered/Resolved]
  - Insomnia [Recovered/Resolved]
  - Cellulitis [Recovered/Resolved]
  - Pharyngitis [Recovered/Resolved]
  - Musculoskeletal pain [Recovered/Resolved]

NARRATIVE: CASE EVENT DATE: 20201005
